FAERS Safety Report 9335549 (Version 3)
Quarter: 2013Q4

REPORT INFORMATION
  Report Type: Spontaneous
  Country: JP (occurrence: JP)
  Receive Date: 20130605
  Receipt Date: 20131119
  Transmission Date: 20140711
  Serious: Yes (Hospitalization)
  Sender: FDA-Public Use
  Company Number: JP-GLAXOSMITHKLINE-B0896049A

PATIENT
  Age: 63 Year
  Sex: Male
  Weight: 71 kg

DRUGS (5)
  1. VALTREX [Suspect]
     Indication: HERPES ZOSTER
     Dosage: 1000MG THREE TIMES PER DAY
     Route: 048
     Dates: start: 20130522, end: 20130526
  2. LOXONIN [Suspect]
     Indication: PRODUCT USED FOR UNKNOWN INDICATION
     Route: 048
  3. ALLOZYM [Concomitant]
     Route: 048
  4. CRESTOR [Concomitant]
     Route: 048
  5. LENIMEC [Concomitant]
     Route: 048

REACTIONS (10)
  - Renal failure acute [Recovered/Resolved]
  - Toxic encephalopathy [Recovered/Resolved]
  - Delirium [Unknown]
  - Tubulointerstitial nephritis [Unknown]
  - Mental impairment [Unknown]
  - Altered state of consciousness [Unknown]
  - Dizziness [Unknown]
  - Memory impairment [Unknown]
  - Drug level increased [Unknown]
  - Restlessness [Unknown]
